FAERS Safety Report 25338031 (Version 1)
Quarter: 2025Q2

REPORT INFORMATION
  Report Type: Report from Study
  Country: US (occurrence: US)
  Receive Date: 20250520
  Receipt Date: 20250520
  Transmission Date: 20250717
  Serious: Yes (Other)
  Sender: TEVA
  Company Number: US-TEVA-VS-3331907

PATIENT
  Age: 16 Year

DRUGS (1)
  1. CLARAVIS [Suspect]
     Active Substance: ISOTRETINOIN
     Indication: Product used for unknown indication
     Route: 065
     Dates: end: 2025

REACTIONS (3)
  - Mood swings [Unknown]
  - Epistaxis [Unknown]
  - Headache [Unknown]

NARRATIVE: CASE EVENT DATE: 20250101
